FAERS Safety Report 5986032-0 (Version None)
Quarter: 2008Q4

REPORT INFORMATION
  Report Type: 
  Country: None (occurrence: None)
  Receive Date: 20081205
  Receipt Date: 20081205
  Transmission Date: 20090506
  Serious: Yes (Hospitalization)
  Sender: FDA-Public Use
  Company Number: None

PATIENT
  Sex: Male
  Weight: 81.7835 kg

DRUGS (11)
  1. GEMCITABINE [Suspect]
     Indication: PANCREATIC CARCINOMA
     Dosage: 1000 MG/M2 DAY 1, DAY 15 IV DRIP
     Route: 041
     Dates: start: 20071227, end: 20081112
  2. BEVACIZUMAB GENENTECH [Suspect]
     Indication: PANCREATIC CARCINOMA
     Dosage: 10 MG/KG DAY 1, DAY 15 IV DRIP
     Route: 041
     Dates: start: 20070220, end: 20081015
  3. AMLODEPINE [Concomitant]
  4. HYDRALAZINE HCL [Concomitant]
  5. CLONIDINE [Concomitant]
  6. LEVOTHYROXINE SODIUM [Concomitant]
  7. FUROSENIDE [Concomitant]
  8. ENOXAPARIN SODIUM [Concomitant]
  9. SKELAXIN [Concomitant]
  10. ATIVAN [Concomitant]
  11. HYDROCODONE BITARTRATE [Concomitant]

REACTIONS (12)
  - BACK PAIN [None]
  - BLOOD PRESSURE SYSTOLIC INCREASED [None]
  - CARDIAC FAILURE CONGESTIVE [None]
  - DISEASE PROGRESSION [None]
  - HAEMOGLOBIN DECREASED [None]
  - HYPERTENSION [None]
  - MUSCLE SPASMS [None]
  - NAUSEA [None]
  - PAIN [None]
  - RENAL IMPAIRMENT [None]
  - THERAPEUTIC RESPONSE DECREASED [None]
  - VOMITING [None]
